FAERS Safety Report 13594188 (Version 1)
Quarter: 2017Q2

REPORT INFORMATION
  Report Type: Spontaneous
  Country: US (occurrence: US)
  Receive Date: 20170530
  Receipt Date: 20170530
  Transmission Date: 20170830
  Serious: No
  Sender: FDA-Public Use
  Company Number: US-PFIZER INC-2017236737

PATIENT
  Age: 60 Year
  Sex: Female

DRUGS (2)
  1. LETROZOLE. [Suspect]
     Active Substance: LETROZOLE
     Dosage: UNK
  2. IBRANCE [Suspect]
     Active Substance: PALBOCICLIB
     Indication: NEOPLASM MALIGNANT
     Dosage: 75 MG, CYCLIC (TAKE 1 CAPSULE BY MOUTH EVERY DAY FOR 21 DAYS, OFF 1 WEEK EVERY 28 DAYS)
     Route: 048
     Dates: start: 201702

REACTIONS (1)
  - Dry skin [Unknown]
